FAERS Safety Report 5370905-6 (Version None)
Quarter: 2007Q2

REPORT INFORMATION
  Report Type: 
  Country: None (occurrence: None)
  Receive Date: 20070626
  Receipt Date: 20070611
  Transmission Date: 20071010
  Serious: Yes (Other)
  Sender: FDA-Public Use
  Company Number: US-SHR-US-2007-021874

PATIENT
  Age: 25 Year
  Sex: Female

DRUGS (3)
  1. BETASERON [Suspect]
     Dosage: 8 MIU, EVERY 2D
     Route: 058
     Dates: start: 20070208
  2. PAXIL [Concomitant]
     Indication: ANXIETY
     Dosage: 40 MG, 1X/DAY
  3. CLONAZEPAM [Concomitant]
     Dosage: AS REQ'D (2X/WEEK)

REACTIONS (3)
  - EYE ROLLING [None]
  - MUSCLE TWITCHING [None]
  - SNORING [None]
